FAERS Safety Report 19458714 (Version 1)
Quarter: 2021Q2

REPORT INFORMATION
  Report Type: Spontaneous
  Country: BR (occurrence: BR)
  Receive Date: 20210624
  Receipt Date: 20210624
  Transmission Date: 20210717
  Serious: Yes (Hospitalization, Other)
  Sender: FDA-Public Use
  Company Number: BR-ORGANON-O2106BRA001385

PATIENT
  Age: 78 Year
  Sex: Female
  Weight: 88 kg

DRUGS (9)
  1. ASPIRIN N [Concomitant]
     Active Substance: ASPIRIN
     Dosage: 100 MILLIGRAM (AFTER LUNCH)
  2. CALCIUM [Concomitant]
     Active Substance: CALCIUM
  3. OMEGA 3 CARDIO [Concomitant]
     Indication: BONE DISORDER
  4. VYTORIN [Suspect]
     Active Substance: EZETIMIBE\SIMVASTATIN
     Dosage: 1 TABLET ? 10/40 MG AT NIGHT
     Route: 048
     Dates: start: 2020, end: 20210611
  5. SIMVASTATIN. [Suspect]
     Active Substance: SIMVASTATIN
     Dosage: UNK
     Route: 048
     Dates: start: 2020, end: 2020
  6. METFORMIN [Concomitant]
     Active Substance: METFORMIN HYDROCHLORIDE
     Indication: TYPE 2 DIABETES MELLITUS
     Dosage: 850 MILLIGRAM, TID (AFTER BREAKFAST, LUNCH AND DINNER)
     Dates: start: 1972
  7. VITAMIN D [VITAMIN D NOS] [Concomitant]
     Active Substance: VITAMIN D NOS
  8. DIAMICRON [Concomitant]
     Active Substance: GLICLAZIDE
     Indication: TYPE 2 DIABETES MELLITUS
     Dosage: 1 TABLET ? 30 MILLIGRAM PER DAY
  9. VYTORIN [Suspect]
     Active Substance: EZETIMIBE\SIMVASTATIN
     Indication: BLOOD CHOLESTEROL INCREASED
     Dosage: 1 TABLET ? 10/20 MG AT NIGHT
     Route: 048
     Dates: start: 2001, end: 2020

REACTIONS (3)
  - Appendicitis [Recovered/Resolved]
  - Blood cholesterol increased [Unknown]
  - Product dose omission issue [Unknown]

NARRATIVE: CASE EVENT DATE: 2020
